FAERS Safety Report 21961860 (Version 1)
Quarter: 2023Q1

REPORT INFORMATION
  Report Type: Spontaneous
  Country: US (occurrence: None)
  Receive Date: 20230204
  Receipt Date: 20230204
  Transmission Date: 20230417
  Serious: Yes (Other)
  Sender: FDA-Public Use
  Company Number: None

PATIENT
  Sex: Male
  Weight: 70.2 kg

DRUGS (6)
  1. OLMESARTAN [Suspect]
     Active Substance: OLMESARTAN
     Indication: Hypertension
     Dosage: OTHER QUANTITY : 30 TABLET(S);?FREQUENCY : AT BEDTIME;?
     Route: 048
  2. HERBALS [Concomitant]
     Active Substance: HERBALS
  3. HERBALS\WITHANIA SOMNIFERA ROOT [Concomitant]
     Active Substance: HERBALS\WITHANIA SOMNIFERA ROOT
  4. Apple Cider Capsules [Concomitant]
  5. ZINC [Concomitant]
     Active Substance: ZINC
  6. MODERNA COVID-19 VACCINE [Suspect]
     Active Substance: ELASOMERAN

REACTIONS (4)
  - Product substitution issue [None]
  - Insurance issue [None]
  - Blood pressure inadequately controlled [None]
  - Therapeutic response decreased [None]
